FAERS Safety Report 4737069-0 (Version None)
Quarter: 2005Q3

REPORT INFORMATION
  Report Type: 
  Country: None (occurrence: None)
  Receive Date: 20050808
  Receipt Date: 20050701
  Transmission Date: 20060218
  Serious: Yes (Hospitalization)
  Sender: FDA-Public Use
  Company Number: PHNU2005DE02436

PATIENT
  Age: 60 Year
  Sex: Female

DRUGS (3)
  1. AREDIA [Suspect]
     Indication: BREAST CANCER METASTATIC
     Dosage: 90 MG, QD
     Route: 042
     Dates: start: 20050330, end: 20050522
  2. ZOMETA [Suspect]
     Indication: BREAST CANCER METASTATIC
     Dosage: 4 MG, QMO
     Route: 042
     Dates: start: 20050523
  3. SALINE [Concomitant]
     Dosage: 100 ML, QMO
     Route: 042
     Dates: start: 20050523

REACTIONS (5)
  - ANXIETY [None]
  - DEPRESSION [None]
  - NAUSEA [None]
  - NEOPLASM MALIGNANT [None]
  - WEIGHT DECREASED [None]
